FAERS Safety Report 5787615-3 (Version None)
Quarter: 2008Q2

REPORT INFORMATION
  Report Type: 
  Country: None (occurrence: None)
  Receive Date: 20080625
  Receipt Date: 20071112
  Transmission Date: 20081010
  Serious: No
  Sender: FDA-Public Use
  Company Number: US-ASTRAZENECA-2007UW23464

PATIENT
  Age: 74 Year
  Sex: Male
  Weight: 61.7 kg

DRUGS (10)
  1. PULMICORT FLEXHALER [Suspect]
     Indication: CHRONIC OBSTRUCTIVE PULMONARY DISEASE
     Route: 055
     Dates: end: 20070901
  2. PULMICORT FLEXHALER [Suspect]
     Route: 055
     Dates: start: 20070901
  3. COMBIVENT [Concomitant]
  4. DUONEB [Concomitant]
  5. PREVACID [Concomitant]
  6. PLAVIX [Concomitant]
  7. DILTIAZEM [Concomitant]
  8. NITROGLYCERIN [Concomitant]
  9. NITROGLYCERIN SPRAY [Concomitant]
  10. PULMICORT [Concomitant]
     Route: 055

REACTIONS (2)
  - DYSPNOEA [None]
  - PHARMACEUTICAL PRODUCT COMPLAINT [None]
